FAERS Safety Report 9775953 (Version 1)
Quarter: 2013Q4

REPORT INFORMATION
  Report Type: Spontaneous
  Country: US (occurrence: None)
  Receive Date: 20131219
  Receipt Date: 20131219
  Transmission Date: 20140711
  Serious: Yes (Other)
  Sender: FDA-Public Use
  Company Number: 2013AP010383

PATIENT
  Age: 21 Year
  Sex: Male

DRUGS (2)
  1. CLOZAPINE [Suspect]
     Dates: end: 20131204
  2. FLUOXETINE (FLUOXETINE) [Suspect]

REACTIONS (4)
  - Neutrophil count decreased [None]
  - White blood cell count decreased [None]
  - Treatment noncompliance [None]
  - Convulsion [None]
